FAERS Safety Report 9299313 (Version 2)
Quarter: 2013Q3

REPORT INFORMATION
  Report Type: Spontaneous
  Country: FR (occurrence: FR)
  Receive Date: 20130520
  Receipt Date: 20130716
  Transmission Date: 20140515
  Serious: Yes (Other)
  Sender: FDA-Public Use
  Company Number: PHHY2013FR050109

PATIENT
  Age: 12 Year
  Sex: Male

DRUGS (3)
  1. OMNITROPE [Suspect]
     Indication: BLOOD GROWTH HORMONE
     Dosage: 1 MG, DAILY
     Dates: start: 20110525
  2. OMNITROPE [Suspect]
     Dosage: 1.6 MG, DAILY
  3. OMNITROPE [Suspect]
     Dosage: 1.8 MG, DAILY

REACTIONS (2)
  - Spinal column injury [Unknown]
  - Back pain [Recovering/Resolving]
